APPROVED DRUG PRODUCT: BUTALBITAL AND ACETAMINOPHEN
Active Ingredient: ACETAMINOPHEN; BUTALBITAL
Strength: 325MG;50MG
Dosage Form/Route: TABLET;ORAL
Application: A087550 | Product #001
Applicant: WATSON LABORATORIES INC
Approved: Oct 19, 1984 | RLD: Yes | RS: No | Type: DISCN